FAERS Safety Report 8266149-0 (Version None)
Quarter: 2012Q2

REPORT INFORMATION
  Report Type: 
  Country: None (occurrence: None)
  Receive Date: 20120406
  Receipt Date: 20120328
  Transmission Date: 20120825
  Serious: Yes (Other)
  Sender: FDA-Public Use
  Company Number: PHEH2012US002469

PATIENT
  Sex: Female

DRUGS (1)
  1. EXJADE [Suspect]
     Dosage: 125 MG, QD
     Route: 048

REACTIONS (3)
  - INFLUENZA [None]
  - CYSTITIS [None]
  - MALAISE [None]
